FAERS Safety Report 21921439 (Version 2)
Quarter: 2023Q2

REPORT INFORMATION
  Report Type: Spontaneous
  Country: US (occurrence: US)
  Receive Date: 20230127
  Receipt Date: 20230629
  Transmission Date: 20230721
  Serious: Yes (Other)
  Sender: FDA-Public Use
  Company Number: US-JNJFOC-20230148344

PATIENT
  Age: 5 Year
  Sex: Male

DRUGS (6)
  1. TYLENOL REGULAR STRENGTH [Suspect]
     Active Substance: ACETAMINOPHEN
     Indication: Nausea
     Dosage: 100 PILLS BOTTLE, TAKEN IN ALL TRIMESTER
     Route: 064
     Dates: start: 200907, end: 201004
  2. TYLENOL EXTRA STRENGTH [Suspect]
     Active Substance: ACETAMINOPHEN
     Indication: Nausea
     Dosage: 100 PILLS BOTTLE, TAKEN IN ALL TRIMESTER
     Route: 064
     Dates: start: 200907, end: 201004
  3. ACETAMINOPHEN [Suspect]
     Active Substance: ACETAMINOPHEN
     Indication: Product used for unknown indication
     Route: 064
     Dates: start: 200907, end: 201004
  4. ACETAMINOPHEN [Suspect]
     Active Substance: ACETAMINOPHEN
     Indication: Product used for unknown indication
     Route: 064
     Dates: start: 200907, end: 201004
  5. ERYTHROMYCIN [Concomitant]
     Active Substance: ERYTHROMYCIN
     Indication: Product used for unknown indication
     Dosage: ERYTHROMYCIN 0.5% OPHTHALMIC OINTMENT 1CM OPHTHALMIC ONCE
     Route: 047
     Dates: start: 20100418
  6. VITAMIN K [Concomitant]
     Active Substance: PHYTONADIONE
     Indication: Product used for unknown indication
     Route: 030
     Dates: start: 20100418

REACTIONS (2)
  - Autism spectrum disorder [Unknown]
  - Foetal exposure during pregnancy [Unknown]

NARRATIVE: CASE EVENT DATE: 20150801
